FAERS Safety Report 17780795 (Version 4)
Quarter: 2020Q3

REPORT INFORMATION
  Report Type: Spontaneous
  Country: US (occurrence: US)
  Receive Date: 20200513
  Receipt Date: 20200819
  Transmission Date: 20201102
  Serious: Yes (Hospitalization, Other)
  Sender: FDA-Public Use
  Company Number: US-UNITED THERAPEUTICS-UNT-2020-007164

PATIENT
  Age: 77 Year
  Sex: Male
  Weight: 83.13 kg

DRUGS (3)
  1. TYVASO [Suspect]
     Active Substance: TREPROSTINIL
     Dosage: 18?54 ?G , QID
  2. TYVASO [Suspect]
     Active Substance: TREPROSTINIL
     Indication: PULMONARY ARTERIAL HYPERTENSION
     Dosage: UNK
     Dates: start: 20190808
  3. TYVASO [Suspect]
     Active Substance: TREPROSTINIL
     Dosage: UNK
     Dates: end: 202007

REACTIONS (10)
  - Tooth abscess [Unknown]
  - Metastases to liver [Unknown]
  - Diverticulitis [Unknown]
  - Rectal haemorrhage [Unknown]
  - Pneumonia [Unknown]
  - Dehydration [Unknown]
  - Diarrhoea [Unknown]
  - Leukaemia [Unknown]
  - Colon cancer metastatic [Unknown]
  - Dysphagia [Unknown]

NARRATIVE: CASE EVENT DATE: 20200508
